FAERS Safety Report 4383754-2 (Version None)
Quarter: 2004Q2

REPORT INFORMATION
  Report Type: 
  Country: None (occurrence: None)
  Receive Date: 20040608
  Receipt Date: 20030616
  Transmission Date: 20050107
  Serious: Yes (Other)
  Sender: FDA-Public Use
  Company Number: 200312049BCC

PATIENT
  Age: 18 Year
  Sex: Female
  Weight: 65.7716 kg

DRUGS (1)
  1. ALEVE [Suspect]
     Indication: SUICIDE ATTEMPT
     Dosage: 4400 MG, ONCE, ORAL
     Route: 048
     Dates: start: 20030616

REACTIONS (1)
  - ABDOMINAL PAIN UPPER [None]
